FAERS Safety Report 5824594-4 (Version None)
Quarter: 2008Q3

REPORT INFORMATION
  Report Type: 
  Country: None (occurrence: None)
  Receive Date: 20080728
  Receipt Date: 20080201
  Transmission Date: 20090109
  Serious: No
  Sender: FDA-Public Use
  Company Number: US-BAYER-200810561BCC

PATIENT
  Age: 69 Year
  Sex: Male
  Weight: 118 kg

DRUGS (6)
  1. ALEVE (CAPLET) [Suspect]
     Indication: SLEEP DISORDER
     Route: 048
     Dates: start: 20080129
  2. SOLAPOL [Concomitant]
  3. LISOPRIL [Concomitant]
  4. LIPITOR [Concomitant]
  5. ATIVAN [Concomitant]
  6. METHADON [Concomitant]

REACTIONS (1)
  - NIGHTMARE [None]
